FAERS Safety Report 4315512-9 (Version None)
Quarter: 2004Q1

REPORT INFORMATION
  Report Type: 
  Country: None (occurrence: None)
  Receive Date: 20040309
  Receipt Date: 20040224
  Transmission Date: 20041129
  Serious: Yes (Other)
  Sender: FDA-Public Use
  Company Number: US_0403101168

PATIENT
  Age: 66 Year
  Sex: Female

DRUGS (7)
  1. HUMULIN N [Suspect]
     Indication: DIABETES MELLITUS NON-INSULIN-DEPENDENT
     Dates: start: 19980501, end: 20010101
  2. HUMULIN R [Suspect]
     Indication: DIABETES MELLITUS NON-INSULIN-DEPENDENT
     Dates: start: 19980501, end: 20010101
  3. HUMALOG [Suspect]
     Indication: DIABETES MELLITUS NON-INSULIN-DEPENDENT
     Dosage: 100 U DAY
     Dates: start: 20010101, end: 20030101
  4. COZAAR [Concomitant]
  5. ATENOLOL [Concomitant]
  6. TRICOR [Concomitant]
  7. ASPIRIN [Concomitant]

REACTIONS (4)
  - BLINDNESS UNILATERAL [None]
  - DIABETES MELLITUS INADEQUATE CONTROL [None]
  - NEUROPATHY PERIPHERAL [None]
  - RADICULOPATHY [None]
